FAERS Safety Report 15125531 (Version 4)
Quarter: 2018Q3

REPORT INFORMATION
  Report Type: Spontaneous
  Country: FR (occurrence: FR)
  Receive Date: 20180710
  Receipt Date: 20180911
  Transmission Date: 20181010
  Serious: Yes (Life-Threatening, Hospitalization)
  Sender: FDA-Public Use
  Company Number: FR-B.I. PHARMACEUTICALS,INC./RIDGEFIELD-2018-12-001517

PATIENT
  Age: 62 Year
  Sex: Female
  Weight: 77 kg

DRUGS (9)
  1. ANTALNOX [Suspect]
     Active Substance: NAPROXEN SODIUM
     Indication: BACK PAIN
     Dosage: 550 MG, BID (2/DAY) /  TREATMENT DURATION OF UNKNOWN DAYS REPORTED IN THE ANSM REPORT
     Route: 048
     Dates: start: 20160311, end: 20160316
  2. SECTRAL [Concomitant]
     Active Substance: ACEBUTOLOL HYDROCHLORIDE
     Indication: HYPERTENSION
     Dosage: 100 MG, QD (1/DAY), ON MORNING
     Route: 048
  3. FLUVASTATIN [Suspect]
     Active Substance: FLUVASTATIN SODIUM
     Indication: HYPERCHOLESTEROLAEMIA
     Dosage: 1 CAPSULE DAILY
     Route: 065
     Dates: start: 20110201, end: 20150922
  4. ATORVASTATINE MYLAN [Suspect]
     Active Substance: ATORVASTATIN
     Indication: HYPERCHOLESTEROLAEMIA
     Dosage: 10 MG, QD (1/DAY), ON THE EVENING
     Route: 048
     Dates: start: 201508, end: 20160404
  5. MELOXICAM. [Suspect]
     Active Substance: MELOXICAM
     Indication: BACK PAIN
     Dosage: 15 MG, TID (3/DAY)/ TREATMENT DURATION OF 2?3 DAYS REPORTED IN THE ANSM REPORT
     Route: 048
     Dates: start: 20160301, end: 20160305
  6. NAPROXEN. [Suspect]
     Active Substance: NAPROXEN
     Indication: PRODUCT USED FOR UNKNOWN INDICATION
     Route: 065
     Dates: start: 20160321
  7. ALDACTAZINE [Concomitant]
     Active Substance: ALTHIAZIDE\SPIRONOLACTONE
     Indication: HYPERTENSION
     Dosage: 10 MG, QD (1/DAY)/ FREQUENCY PRN IN THE ANSM REPORT
     Route: 048
     Dates: end: 20160404
  8. RAMIPRIL. [Concomitant]
     Active Substance: RAMIPRIL
     Indication: HYPERTENSION
     Dosage: 1.25 MG, QD (1/DAY) / FREQUENCY PRN IN THE ANSM REPORT
     Route: 048
     Dates: end: 20160404
  9. APRANAX [Suspect]
     Active Substance: NAPROXEN
     Indication: BACK PAIN
     Route: 065

REACTIONS (1)
  - Hepatitis fulminant [Recovered/Resolved with Sequelae]

NARRATIVE: CASE EVENT DATE: 20160315
